FAERS Safety Report 14415373 (Version 3)
Quarter: 2018Q3

REPORT INFORMATION
  Report Type: Report from Study
  Country: CO (occurrence: CO)
  Receive Date: 20180121
  Receipt Date: 20180808
  Transmission Date: 20181010
  Serious: Yes (Hospitalization)
  Sender: FDA-Public Use
  Company Number: PHHY2018CO005234

PATIENT
  Age: 56 Year
  Sex: Female
  Weight: 62 kg

DRUGS (1)
  1. COSENTYX [Suspect]
     Active Substance: SECUKINUMAB
     Indication: PSORIATIC ARTHROPATHY
     Dosage: 300 MG/2ML, QMO
     Route: 058
     Dates: start: 20170919

REACTIONS (8)
  - Pharyngeal oedema [Unknown]
  - Viral infection [Unknown]
  - Influenza [Recovered/Resolved]
  - Arthritis [Unknown]
  - Laryngitis [Recovered/Resolved]
  - Pyrexia [Unknown]
  - Cough [Unknown]
  - Upper respiratory tract infection [Recovered/Resolved]

NARRATIVE: CASE EVENT DATE: 201712
